FAERS Safety Report 12579668 (Version 2)
Quarter: 2016Q3

REPORT INFORMATION
  Report Type: Spontaneous
  Country: DE (occurrence: DE)
  Receive Date: 20160721
  Receipt Date: 20160729
  Transmission Date: 20161109
  Serious: Yes (Hospitalization, Other)
  Sender: FDA-Public Use
  Company Number: DE-SA-2016SA129864

PATIENT
  Age: 40 Year
  Sex: Female

DRUGS (2)
  1. AUBAGIO [Suspect]
     Active Substance: TERIFLUNOMIDE
     Indication: MULTIPLE SCLEROSIS
     Route: 048
     Dates: start: 201605
  2. TRIAMCINOLONE ACETONIDE. [Suspect]
     Active Substance: TRIAMCINOLONE ACETONIDE
     Indication: MULTIPLE SCLEROSIS
     Route: 037
     Dates: start: 20160608, end: 20160611

REACTIONS (9)
  - Gait disturbance [Not Recovered/Not Resolved]
  - Off label use [Unknown]
  - Tremor [Not Recovered/Not Resolved]
  - Frequent bowel movements [Not Recovered/Not Resolved]
  - Muscular weakness [Unknown]
  - Condition aggravated [Unknown]
  - Fall [Not Recovered/Not Resolved]
  - Dyspepsia [Recovered/Resolved]
  - Faeces soft [Not Recovered/Not Resolved]

NARRATIVE: CASE EVENT DATE: 2016
